FAERS Safety Report 13366523 (Version 1)
Quarter: 2017Q1

REPORT INFORMATION
  Report Type: Spontaneous
  Country: US (occurrence: US)
  Receive Date: 20170323
  Receipt Date: 20170323
  Transmission Date: 20170429
  Serious: Yes (Other)
  Sender: FDA-Public Use
  Company Number: US-BAUSCH-BL-2017-007430

PATIENT
  Age: 57 Year
  Sex: Male

DRUGS (1)
  1. XENAZINE [Suspect]
     Active Substance: TETRABENAZINE
     Indication: HUNTINGTON^S DISEASE
     Dosage: ONE TABLET AT 7AM, AT 1PM, 7PM
     Route: 048
     Dates: start: 201304

REACTIONS (2)
  - Drug dose omission [Unknown]
  - Huntington^s disease [Not Recovered/Not Resolved]

NARRATIVE: CASE EVENT DATE: 201703
